FAERS Safety Report 7889689-2 (Version None)
Quarter: 2011Q4

REPORT INFORMATION
  Report Type: 
  Country: None (occurrence: None)
  Receive Date: 20111103
  Receipt Date: 20111025
  Transmission Date: 20120403
  Serious: Yes (Hospitalization, Other)
  Sender: FDA-Public Use
  Company Number: US-ABBOTT-11P-163-0868401-00

PATIENT
  Sex: Male

DRUGS (5)
  1. PENTASA [Concomitant]
     Indication: CROHN'S DISEASE
  2. CRESTOR [Concomitant]
     Indication: BLOOD CHOLESTEROL INCREASED
  3. GLIPERIDE [Concomitant]
     Indication: DIABETES MELLITUS
  4. HUMIRA [Suspect]
     Indication: CROHN'S DISEASE
     Route: 058
     Dates: start: 20090101, end: 20110901
  5. ENALAPRIL MALEATE [Concomitant]
     Indication: HYPERTENSION

REACTIONS (3)
  - WHITE BLOOD CELL COUNT DECREASED [None]
  - LEUKAEMIA [None]
  - PNEUMONIA [None]
